FAERS Safety Report 4870761-6 (Version None)
Quarter: 2005Q4

REPORT INFORMATION
  Report Type: 
  Country: None (occurrence: None)
  Receive Date: 20051229
  Receipt Date: 20051214
  Transmission Date: 20060501
  Serious: Yes (Death, Hospitalization)
  Sender: FDA-Public Use
  Company Number: 2005-02575

PATIENT
  Age: 70 Year
  Sex: Female
  Weight: 45 kg

DRUGS (1)
  1. VELCADE [Suspect]
     Indication: MULTIPLE MYELOMA
     Dosage: 1.60 MG, INTRAVENOUS
     Route: 042
     Dates: start: 20050711, end: 20050721

REACTIONS (12)
  - ANAEMIA [None]
  - ANAL HAEMORRHAGE [None]
  - ASTHENIA [None]
  - CARDIAC FAILURE [None]
  - CARDIOVASCULAR DISORDER [None]
  - DYSPNOEA [None]
  - GENERAL PHYSICAL HEALTH DETERIORATION [None]
  - LOWER GASTROINTESTINAL HAEMORRHAGE [None]
  - NEUTROPENIA [None]
  - PAINFUL DEFAECATION [None]
  - PYREXIA [None]
  - THROMBOCYTOPENIA [None]
